FAERS Safety Report 25470020 (Version 2)
Quarter: 2025Q3

REPORT INFORMATION
  Report Type: Report from Study
  Country: US (occurrence: US)
  Receive Date: 20250623
  Receipt Date: 20250701
  Transmission Date: 20251021
  Serious: No
  Sender: MALLINCKRODT
  Company Number: US-MALLINCKRODT-MNK202503729

PATIENT
  Age: 12 Month
  Sex: Female
  Weight: 8 kg

DRUGS (2)
  1. CORTICOTROPIN [Suspect]
     Active Substance: CORTICOTROPIN
     Indication: Infantile spasms
     Dosage: 30 UNITS
     Route: 030
     Dates: start: 20250603
  2. CORTICOTROPIN [Suspect]
     Active Substance: CORTICOTROPIN
     Route: 030
     Dates: start: 202506

REACTIONS (4)
  - Illness [Unknown]
  - Abdominal pain upper [Unknown]
  - Sleep disorder [Unknown]
  - Irritability [Unknown]

NARRATIVE: CASE EVENT DATE: 20250601
